FAERS Safety Report 15956561 (Version 1)
Quarter: 2019Q1

REPORT INFORMATION
  Report Type: Report from Study
  Country: GB (occurrence: GB)
  Receive Date: 20190213
  Receipt Date: 20190213
  Transmission Date: 20190417
  Serious: Yes (Other)
  Sender: FDA-Public Use
  Company Number: GB-MYLANLABS-2019M1012987

PATIENT
  Age: 36 Year
  Sex: Female

DRUGS (2)
  1. MITOMYCIN. [Suspect]
     Active Substance: MITOMYCIN
     Indication: PROPHYLAXIS
     Dosage: 0.1ML OF 0.4 MG/ML
     Route: 057
  2. MITOMYCIN. [Suspect]
     Active Substance: MITOMYCIN
     Indication: PROPHYLAXIS
     Dosage: UNK
     Route: 065

REACTIONS (5)
  - Ocular vascular disorder [Unknown]
  - Off label use [Unknown]
  - Maculopathy [Unknown]
  - Hypotony of eye [Unknown]
  - Conjunctival bleb [Unknown]
